FAERS Safety Report 9324678 (Version 2)
Quarter: 2013Q2

REPORT INFORMATION
  Report Type: Spontaneous
  Country: US (occurrence: None)
  Receive Date: 20130529
  Receipt Date: 20130606
  Transmission Date: 20140414
  Serious: Yes (Hospitalization)
  Sender: FDA-Public Use
  Company Number: JPI-P-030070

PATIENT
  Age: 43 Year
  Sex: Female

DRUGS (9)
  1. XYREM (500 MILLIGRAM/MILLILITERS, SOLUTION) (SODIUM OXYBATE) [Suspect]
     Indication: INSOMNIA
     Dosage: 6 GM (3 GM 2 IN 1 D), ORAL
     Route: 048
     Dates: start: 20120824
  2. ZOLPIDEM [Concomitant]
  3. TIZANIDINE [Concomitant]
  4. DIAZEPAM [Concomitant]
  5. CARISOPRODOL [Concomitant]
  6. PROMETHAZINE [Concomitant]
  7. 5-HTP [Concomitant]
  8. KAVA KAVA SUPPLEMENT [Concomitant]
  9. OXYCODONE [Concomitant]

REACTIONS (2)
  - Psychotic disorder [None]
  - Insomnia [None]
